FAERS Safety Report 11685394 (Version 1)
Quarter: 2015Q4

REPORT INFORMATION
  Report Type: Spontaneous
  Country: US (occurrence: None)
  Receive Date: 20151029
  Receipt Date: 20151029
  Transmission Date: 20160304
  Serious: No
  Sender: FDA-Public Use
  Company Number: None

PATIENT
  Age: 40 Year
  Sex: Female
  Weight: 91.63 kg

DRUGS (3)
  1. DOXYCYCLINE 100MG [Suspect]
     Active Substance: DOXYCYCLINE
     Indication: ACNE
     Dosage: 1 PILL
     Route: 048
     Dates: start: 20151023, end: 20151028
  2. DAILY MULTIVITAMIN [Concomitant]
     Active Substance: VITAMINS
  3. ARMOUR THYROID [Concomitant]
     Active Substance: THYROID, PORCINE\THYROID, UNSPECIFIED

REACTIONS (5)
  - Cardiac flutter [None]
  - Anxiety [None]
  - Insomnia [None]
  - Palpitations [None]
  - Formication [None]

NARRATIVE: CASE EVENT DATE: 20151023
